FAERS Safety Report 5525800-6 (Version None)
Quarter: 2007Q4

REPORT INFORMATION
  Report Type: 
  Country: None (occurrence: None)
  Receive Date: 20071126
  Receipt Date: 20071015
  Transmission Date: 20080405
  Serious: No
  Sender: FDA-Public Use
  Company Number: AT-ELI_LILLY_AND_COMPANY-AT200711003815

PATIENT
  Age: 57 Year
  Sex: Male

DRUGS (3)
  1. CIALIS [Suspect]
     Indication: ERECTILE DYSFUNCTION
     Dosage: 5 MG, WEEKLY (1/W)
     Route: 048
     Dates: start: 20070401
  2. PARLODEL [Concomitant]
     Indication: PITUITARY TUMOUR BENIGN
     Dosage: 1.25 MG, DAILY (1/D)
     Dates: start: 19970101
  3. HYALURONIC ACID [Concomitant]
     Dosage: UNK, AS NEEDED

REACTIONS (1)
  - VISION BLURRED [None]
